FAERS Safety Report 7598131-0 (Version None)
Quarter: 2011Q3

REPORT INFORMATION
  Report Type: 
  Country: None (occurrence: None)
  Receive Date: 20110708
  Receipt Date: 20110629
  Transmission Date: 20111222
  Serious: Yes (Hospitalization)
  Sender: FDA-Public Use
  Company Number: US-JNJFOC-20110701529

PATIENT
  Sex: Female

DRUGS (7)
  1. EXTRA STRENGTH TYLENOL [Suspect]
     Indication: PAIN
     Route: 048
  2. POTASSIUM [Concomitant]
     Route: 065
  3. EXTRA STRENGTH TYLENOL [Suspect]
     Route: 048
  4. VITAMIN B-12 [Concomitant]
     Route: 065
  5. CALCIUM CARBONATE [Concomitant]
     Route: 065
  6. ANTI HYPERTENSIVES [Concomitant]
     Route: 065
  7. ULORIC [Concomitant]
     Route: 065

REACTIONS (6)
  - BLOOD POTASSIUM INCREASED [None]
  - BLOOD PRESSURE DECREASED [None]
  - PRODUCT QUALITY ISSUE [None]
  - RENAL FAILURE [None]
  - WEIGHT DECREASED [None]
  - BLOOD GLUCOSE INCREASED [None]
